FAERS Safety Report 6888477-3 (Version None)
Quarter: 2010Q3

REPORT INFORMATION
  Report Type: 
  Country: None (occurrence: None)
  Receive Date: 20100730
  Receipt Date: 20100719
  Transmission Date: 20110219
  Serious: Yes (Other)
  Sender: FDA-Public Use
  Company Number: PHFR2010GB01419

PATIENT
  Age: 42 Year
  Sex: Male

DRUGS (1)
  1. TEGRETOL [Suspect]
     Dosage: 400 MG AM, 200 MG PM

REACTIONS (4)
  - CONVULSION [None]
  - DIARRHOEA [None]
  - GASTRIC INFECTION [None]
  - VOMITING [None]
